FAERS Safety Report 5455350-7 (Version None)
Quarter: 2007Q3

REPORT INFORMATION
  Report Type: 
  Country: None (occurrence: None)
  Receive Date: 20070918
  Receipt Date: 20070914
  Transmission Date: 20080115
  Serious: Yes (Other)
  Sender: FDA-Public Use
  Company Number: AU-BRISTOL-MYERS SQUIBB COMPANY-13905096

PATIENT

DRUGS (5)
  1. IFOSFAMIDE [Suspect]
     Indication: LYMPHOMA
     Route: 042
  2. CARBOPLATIN [Suspect]
     Indication: LYMPHOMA
     Dosage: MG DOSE 5*AUC
     Route: 042
  3. ETOPOSIDE [Suspect]
     Indication: LYMPHOMA
     Route: 042
  4. RITUXIMAB [Suspect]
     Indication: LYMPHOMA
  5. FILGRASTIM [Suspect]
     Indication: LYMPHOMA

REACTIONS (5)
  - CARDIOTOXICITY [None]
  - HAEMATOTOXICITY [None]
  - HAEMATURIA [None]
  - NEUROTOXICITY [None]
  - RENAL IMPAIRMENT [None]
